FAERS Safety Report 7343479-8 (Version None)
Quarter: 2011Q1

REPORT INFORMATION
  Report Type: 
  Country: None (occurrence: None)
  Receive Date: 20110310
  Receipt Date: 20100208
  Transmission Date: 20110831
  Serious: No
  Sender: FDA-Public Use
  Company Number: A0843423A

PATIENT
  Age: 39 Year
  Sex: Female

DRUGS (3)
  1. NICORETTE (MINT) [Suspect]
     Dates: start: 20100206
  2. NICOTINE POLACRILEX [Suspect]
     Dates: start: 20100205, end: 20100206
  3. NICORETTE [Suspect]

REACTIONS (3)
  - PRODUCT QUALITY ISSUE [None]
  - DRUG ADMINISTRATION ERROR [None]
  - DRUG INEFFECTIVE [None]
